FAERS Safety Report 24388557 (Version 1)
Quarter: 2024Q4

REPORT INFORMATION
  Report Type: Spontaneous
  Country: US (occurrence: US)
  Receive Date: 20241002
  Receipt Date: 20241002
  Transmission Date: 20250115
  Serious: No
  Sender: QOL
  Company Number: US-QOL Medical, LLC-2162373

PATIENT
  Age: 70 Year
  Sex: Female
  Weight: 62.727 kg

DRUGS (4)
  1. SUCRAID [Suspect]
     Active Substance: SACROSIDASE
     Dates: start: 20231117
  2. SYNTHROID [Concomitant]
     Active Substance: LEVOTHYROXINE SODIUM
  3. XIIDRA [Concomitant]
     Active Substance: LIFITEGRAST
  4. ACYCLOVIR [Concomitant]
     Active Substance: ACYCLOVIR

REACTIONS (1)
  - Rash [Not Recovered/Not Resolved]

NARRATIVE: CASE EVENT DATE: 20231117
